FAERS Safety Report 22659192 (Version 1)
Quarter: 2023Q2

REPORT INFORMATION
  Report Type: Spontaneous
  Country: US (occurrence: None)
  Receive Date: 20230629
  Receipt Date: 20230629
  Transmission Date: 20230721
  Serious: Yes (Life-Threatening)
  Sender: FDA-Public Use
  Company Number: None

PATIENT
  Age: 38 Year
  Sex: Male
  Weight: 100.5 kg

DRUGS (6)
  1. TESTOSTERONE CYPIONATE [Suspect]
     Active Substance: TESTOSTERONE CYPIONATE
     Indication: Hypogonadism
     Dosage: OTHER FREQUENCY : EVERY 7 DAYS;?
     Route: 030
  2. PHENTERMINE [Suspect]
     Active Substance: PHENTERMINE
     Indication: Obesity
     Dosage: FREQUENCY : DAILY;?
     Route: 048
  3. GONADOTROPHIN, CHORIONIC [Concomitant]
     Active Substance: GONADOTROPHIN, CHORIONIC
  4. CABERGOLINE [Concomitant]
     Active Substance: CABERGOLINE
  5. ANASTROZOLE [Concomitant]
     Active Substance: ANASTROZOLE
  6. PHENTERMINE [Concomitant]
     Active Substance: PHENTERMINE

REACTIONS (4)
  - Cardiac arrest [None]
  - Ventricular fibrillation [None]
  - Respiratory arrest [None]
  - Seizure [None]

NARRATIVE: CASE EVENT DATE: 20230627
